FAERS Safety Report 4691963-8 (Version None)
Quarter: 2005Q2

REPORT INFORMATION
  Report Type: 
  Country: None (occurrence: None)
  Receive Date: 20050614
  Receipt Date: 20040427
  Transmission Date: 20051028
  Serious: Yes (Hospitalization)
  Sender: FDA-Public Use
  Company Number: 138768USA

PATIENT
  Age: 42 Year
  Sex: Female

DRUGS (10)
  1. COPAXONE [Suspect]
     Indication: MULTIPLE SCLEROSIS
     Dates: start: 20021001
  2. ACTHAR GEL-SYNTHETIC [Suspect]
  3. WELLBUTRIN [Concomitant]
  4. TRILEPTAL [Concomitant]
  5. ZANAFLEX [Concomitant]
  6. PROVIGIL [Concomitant]
  7. SYNTHROID [Concomitant]
  8. ATENOLOL [Concomitant]
  9. REMERON [Concomitant]
  10. TRAZODONE [Concomitant]

REACTIONS (8)
  - CONDITION AGGRAVATED [None]
  - DEPRESSION [None]
  - INSOMNIA [None]
  - IRRITABILITY [None]
  - MULTIPLE SCLEROSIS [None]
  - NERVOUSNESS [None]
  - STEROID WITHDRAWAL SYNDROME [None]
  - SUICIDAL IDEATION [None]
